FAERS Safety Report 23782586 (Version 4)
Quarter: 2024Q3

REPORT INFORMATION
  Report Type: Spontaneous
  Country: US (occurrence: US)
  Receive Date: 20240425
  Receipt Date: 20240717
  Transmission Date: 20241016
  Serious: No
  Sender: PFIZER
  Company Number: US-PFIZER INC-PV202400046245

PATIENT
  Age: 49 Year
  Sex: Female
  Weight: 53.52 kg

DRUGS (1)
  1. ESTRING [Suspect]
     Active Substance: ESTRADIOL
     Indication: Menopause
     Dosage: 2 MG, EVERY 3 MONTHS
     Dates: start: 20240207

REACTIONS (3)
  - Therapeutic product effect incomplete [Not Recovered/Not Resolved]
  - Poor quality device used [Unknown]
  - Device breakage [Unknown]
